FAERS Safety Report 24960408 (Version 1)
Quarter: 2025Q1

REPORT INFORMATION
  Report Type: Spontaneous
  Country: ES (occurrence: ES)
  Receive Date: 20250212
  Receipt Date: 20250212
  Transmission Date: 20250408
  Serious: Yes (Hospitalization, Other)
  Sender: PFIZER
  Company Number: ES-PFIZER INC-PV202500015167

PATIENT
  Sex: Male

DRUGS (2)
  1. VYNDAQEL [Suspect]
     Active Substance: TAFAMIDIS MEGLUMINE
     Indication: Cardiac amyloidosis
  2. VYNDAQEL [Suspect]
     Active Substance: TAFAMIDIS MEGLUMINE
     Indication: Acquired ATTR amyloidosis

REACTIONS (9)
  - Acute hepatic failure [Not Recovered/Not Resolved]
  - Cardiac failure [Unknown]
  - Atrial fibrillation [Unknown]
  - Pulmonary congestion [Unknown]
  - Low cardiac output syndrome [Unknown]
  - Lower gastrointestinal haemorrhage [Unknown]
  - Gastrointestinal disorder [Unknown]
  - Hyperbilirubinaemia [Unknown]
  - N-terminal prohormone brain natriuretic peptide increased [Unknown]
